FAERS Safety Report 24014528 (Version 1)
Quarter: 2024Q2

REPORT INFORMATION
  Report Type: Spontaneous
  Country: IN (occurrence: IN)
  Receive Date: 20240626
  Receipt Date: 20240626
  Transmission Date: 20240716
  Serious: Yes (Death, Other)
  Sender: FDA-Public Use
  Company Number: IN-SUN PHARMACEUTICAL INDUSTRIES LTD-2024R1-452774

PATIENT
  Age: 42 Year
  Sex: Female

DRUGS (2)
  1. PRAMIPEXOLE [Suspect]
     Active Substance: PRAMIPEXOLE\PRAMIPEXOLE DIHYDROCHLORIDE
     Indication: Parkinsonism
     Route: 065
  2. SAFINAMIDE [Suspect]
     Active Substance: SAFINAMIDE
     Indication: Parkinsonism
     Route: 065

REACTIONS (3)
  - Completed suicide [Fatal]
  - Depression [Fatal]
  - Hallucination [Fatal]
